FAERS Safety Report 5898687-X (Version None)
Quarter: 2008Q3

REPORT INFORMATION
  Report Type: 
  Country: None (occurrence: None)
  Receive Date: 20080925
  Receipt Date: 20080402
  Transmission Date: 20090109
  Serious: No
  Sender: FDA-Public Use
  Company Number: A0722343A

PATIENT
  Sex: Female

DRUGS (2)
  1. BUPROPION HYDROCHLORIDE [Suspect]
     Indication: DRUG USE FOR UNKNOWN INDICATION
     Route: 048
  2. WELLBUTRIN XL [Suspect]
     Indication: DRUG USE FOR UNKNOWN INDICATION
     Route: 048

REACTIONS (6)
  - DEPRESSED MOOD [None]
  - DEPRESSION [None]
  - FEELING ABNORMAL [None]
  - MOOD ALTERED [None]
  - SOCIAL AVOIDANT BEHAVIOUR [None]
  - WEIGHT INCREASED [None]
